FAERS Safety Report 25908162 (Version 1)
Quarter: 2025Q4

REPORT INFORMATION
  Report Type: Spontaneous
  Country: US (occurrence: US)
  Receive Date: 20251010
  Receipt Date: 20251010
  Transmission Date: 20260117
  Serious: Yes (Hospitalization)
  Sender: ACERUS PHARMACEUTICALS CORPORATION
  Company Number: US-ACERUSPHRM-2025-US-000054

PATIENT
  Age: 58 Year
  Sex: Female

DRUGS (9)
  1. TESTOSTERONE [Suspect]
     Active Substance: TESTOSTERONE
     Indication: Menopause
     Dates: start: 2009
  2. LORAZEPAM [Concomitant]
     Active Substance: LORAZEPAM
     Indication: Psychiatric symptom
  3. QUETIAPINE [Concomitant]
     Active Substance: QUETIAPINE
     Indication: Psychiatric symptom
  4. SERTRALINE [Concomitant]
     Active Substance: SERTRALINE HYDROCHLORIDE
     Indication: Psychiatric symptom
  5. GABA [Concomitant]
     Active Substance: HOMEOPATHICS
     Indication: Product used for unknown indication
  6. DIETARY SUPPLEMENT [Concomitant]
     Active Substance: DIETARY SUPPLEMENT
     Indication: Product used for unknown indication
  7. ST. JOHN^S WORT [Concomitant]
     Active Substance: ST. JOHN^S WORT
     Indication: Product used for unknown indication
  8. ESSENTIAL OILS [Concomitant]
     Active Substance: ESSENTIAL OILS
     Indication: Product used for unknown indication
  9. CYANOCOBALAMIN\DEXPANTHENOL\NIACINAMIDE\PYRIDOXINE HYDROCHLORIDE\RIBOF [Concomitant]
     Active Substance: CYANOCOBALAMIN\DEXPANTHENOL\NIACINAMIDE\PYRIDOXINE HYDROCHLORIDE\RIBOFLAVIN 5^-PHOSPHATE SODIUM\THIA
     Indication: Product used for unknown indication

REACTIONS (6)
  - Anxiety [Recovered/Resolved]
  - Delusion [Recovered/Resolved]
  - Agitation [Recovered/Resolved]
  - Violence-related symptom [Recovered/Resolved]
  - Insomnia [Recovered/Resolved]
  - Overdose [Recovered/Resolved]

NARRATIVE: CASE EVENT DATE: 20210101
